FAERS Safety Report 4282040-9 (Version None)
Quarter: 2004Q1

REPORT INFORMATION
  Report Type: 
  Country: None (occurrence: None)
  Receive Date: 20040128
  Receipt Date: 20040123
  Transmission Date: 20041129
  Serious: Yes (Hospitalization, Other)
  Sender: FDA-Public Use
  Company Number: FRWYE245807AUG03

PATIENT
  Age: 55 Year
  Sex: Female

DRUGS (9)
  1. CYCLOSPORINE, CONTROL FOR SILOLIMUS (CYCLOSPORINE, CONTROL FOR SIROLIM [Suspect]
     Indication: PROPHYLAXIS AGAINST TRANSPLANT REJECTION
     Dosage: SEE IMAGE; ORAL
     Route: 048
     Dates: start: 20030605, end: 20030607
  2. CYCLOSPORINE, CONTROL FOR SILOLIMUS (CYCLOSPORINE, CONTROL FOR SIROLIM [Suspect]
     Indication: PROPHYLAXIS AGAINST TRANSPLANT REJECTION
     Dosage: SEE IMAGE; ORAL
     Route: 048
     Dates: start: 20030608
  3. CELLCEPT [Suspect]
     Indication: PROPHYLAXIS AGAINST TRANSPLANT REJECTION
     Dosage: SEE IMAGE
     Route: 048
     Dates: start: 20030605, end: 20030702
  4. CELLCEPT [Suspect]
     Indication: PROPHYLAXIS AGAINST TRANSPLANT REJECTION
     Dosage: SEE IMAGE
     Route: 048
     Dates: start: 20030801
  5. HEPARIN [Suspect]
     Indication: ANGINA UNSTABLE
     Dates: start: 20030610, end: 20030601
  6. KARDEGIC (ACETYLSALICYLATE LYSINE,  0) [Suspect]
     Indication: ANGINA UNSTABLE
     Dosage: ORAL
     Route: 048
     Dates: start: 20030610, end: 20030601
  7. ANTYTHYMOCYTE IMMUNOGLOBULIN (ANTYITHYMOCYTE IMMUNOGLOBULIN) [Concomitant]
  8. SOLU-MEDROL (METHYLPREDNSOLONE SODIUM SUCCINATE) [Concomitant]
  9. PREDNISONE [Concomitant]

REACTIONS (11)
  - ABDOMINAL WALL ABSCESS [None]
  - BACILLUS INFECTION [None]
  - CANDIDIASIS [None]
  - DISEASE RECURRENCE [None]
  - ENTEROBACTER INFECTION [None]
  - ENTEROCOCCAL INFECTION [None]
  - ESCHERICHIA INFECTION [None]
  - HAEMATOMA [None]
  - IMPAIRED HEALING [None]
  - PURULENCE [None]
  - STAPHYLOCOCCAL INFECTION [None]
